FAERS Safety Report 10283571 (Version 1)
Quarter: 2014Q3

REPORT INFORMATION
  Report Type: Spontaneous
  Country: IT (occurrence: None)
  Receive Date: 20140702
  Receipt Date: 20140702
  Transmission Date: 20150326
  Serious: Yes (Hospitalization)
  Sender: FDA-Public Use
  Company Number: FK201402566

PATIENT
  Age: 63 Year
  Sex: Male

DRUGS (2)
  1. GEMCITABINE [Suspect]
     Active Substance: GEMCITABINE\GEMCITABINE HYDROCHLORIDE
     Indication: CHOLANGIOCARCINOMA
     Dosage: TOTAL, (NOT OTHERWISE SPECIFIED)
     Route: 042
     Dates: start: 20140527
  2. OXALIPLATIN (MANUFACTURER UNKNOWN)(OXALIPLATIN)(OXALIPLATIN) [Suspect]
     Active Substance: OXALIPLATIN
     Indication: CHOLANGIOCARCINOMA
     Dosage: TOTAL. (NOT OTHERWISE SPECIFIED)
     Route: 042
     Dates: start: 20140529

REACTIONS (4)
  - Nausea [None]
  - Dehydration [None]
  - Diarrhoea [None]
  - Cholangiocarcinoma [None]

NARRATIVE: CASE EVENT DATE: 20140603
